FAERS Safety Report 14523513 (Version 3)
Quarter: 2019Q1

REPORT INFORMATION
  Report Type: Report from Study
  Country: None (occurrence: US)
  Receive Date: 20180212
  Receipt Date: 20190322
  Transmission Date: 20190417
  Serious: Yes (Hospitalization, Other)
  Sender: FDA-Public Use
  Company Number: US-ABBVIE-18S-163-2252404-00

PATIENT
  Age: 68 Year
  Sex: Female
  Weight: 47.67 kg

DRUGS (9)
  1. NORTRIPTYLINE [Concomitant]
     Active Substance: NORTRIPTYLINE
     Indication: SLEEP DISORDER THERAPY
  2. ESTRADIOL. [Concomitant]
     Active Substance: ESTRADIOL
     Indication: HORMONE REPLACEMENT THERAPY
  3. TAZANIDINE [Concomitant]
     Indication: MUSCLE SPASMS
  4. HYDROCODONE [Concomitant]
     Active Substance: HYDROCODONE
     Indication: PAIN
  5. PRIMIDONE. [Concomitant]
     Active Substance: PRIMIDONE
     Indication: TREMOR
  6. CREON [Suspect]
     Active Substance: PANCRELIPASE AMYLASE\PANCRELIPASE LIPASE\PANCRELIPASE PROTEASE
     Indication: PANCREATIC FAILURE
     Dosage: 1 BEFORE MEALS AND WITH SNACK
     Route: 048
     Dates: start: 2013
  7. PROPANOLOL [Concomitant]
     Active Substance: PROPRANOLOL HYDROCHLORIDE
     Indication: TREMOR
  8. IPRATROPIUM BROMIDE. [Concomitant]
     Active Substance: IPRATROPIUM BROMIDE
     Indication: SINUS DISORDER
  9. BETAMETHASONE. [Concomitant]
     Active Substance: BETAMETHASONE
     Indication: ECZEMA

REACTIONS (12)
  - Anxiety [Recovered/Resolved]
  - Tendon rupture [Unknown]
  - Cataract [Unknown]
  - Facial bones fracture [Recovered/Resolved]
  - Eye contusion [Recovered/Resolved]
  - Subdural haematoma [Recovered/Resolved]
  - Facial bones fracture [Unknown]
  - Mass [Recovered/Resolved]
  - Contusion [Recovered/Resolved]
  - Tremor [Not Recovered/Not Resolved]
  - Rotator cuff repair [Unknown]
  - Eczema [Unknown]

NARRATIVE: CASE EVENT DATE: 201608
